FAERS Safety Report 7925913 (Version 3)
Quarter: 2013Q1

REPORT INFORMATION
  Report Type: Spontaneous
  Country: US (occurrence: US)
  Receive Date: 20110502
  Receipt Date: 20130114
  Transmission Date: 20140127
  Serious: Yes (Hospitalization)
  Sender: FDA-Public Use
  Company Number: US-ASTRAZENECA-2010SE50600

PATIENT
  Age: 62 Year
  Sex: Male

DRUGS (4)
  1. NEXIUM [Suspect]
     Route: 048
     Dates: start: 2009
  2. NEXIUM [Suspect]
     Route: 048
  3. TOPROL XL [Suspect]
     Route: 048
  4. NORVASC [Suspect]
     Route: 065

REACTIONS (6)
  - Nephrolithiasis [Unknown]
  - Calculus ureteric [Unknown]
  - Muscle spasms [Unknown]
  - Abdominal pain upper [Recovered/Resolved]
  - Blood uric acid increased [Unknown]
  - Intentional drug misuse [Unknown]
